FAERS Safety Report 5055045-8 (Version None)
Quarter: 2006Q3

REPORT INFORMATION
  Report Type: 
  Country: None (occurrence: None)
  Receive Date: 20060719
  Receipt Date: 20060710
  Transmission Date: 20061208
  Serious: Yes (Other)
  Sender: FDA-Public Use
  Company Number: PHBS2006KR10363

PATIENT
  Sex: Male

DRUGS (2)
  1. CLOZARIL [Suspect]
     Route: 048
  2. VALPROIC ACID [Concomitant]

REACTIONS (3)
  - CATARACT [None]
  - CORNEAL DEPOSITS [None]
  - VISION BLURRED [None]
